FAERS Safety Report 7437069-6 (Version None)
Quarter: 2011Q2

REPORT INFORMATION
  Report Type: 
  Country: None (occurrence: None)
  Receive Date: 20110426
  Receipt Date: 20110414
  Transmission Date: 20111010
  Serious: Yes (Other)
  Sender: FDA-Public Use
  Company Number: PHHY2011AU31956

PATIENT
  Sex: Female

DRUGS (1)
  1. ACLASTA [Suspect]
     Indication: OSTEOPOROSIS
     Dosage: 5 MG, UNK
     Route: 042
     Dates: start: 20110407

REACTIONS (6)
  - HALLUCINATION [None]
  - PARAESTHESIA [None]
  - HEADACHE [None]
  - MYALGIA [None]
  - PAIN [None]
  - NAUSEA [None]
